FAERS Safety Report 4652592-5 (Version None)
Quarter: 2005Q2

REPORT INFORMATION
  Report Type: 
  Country: None (occurrence: None)
  Receive Date: 20050502
  Receipt Date: 20050412
  Transmission Date: 20051028
  Serious: Yes (Other)
  Sender: FDA-Public Use
  Company Number: DE-2005-003831

PATIENT
  Sex: Female

DRUGS (1)
  1. ULTRAVIST 300 [Suspect]
     Indication: COMPUTERISED TOMOGRAM
     Dosage: 1 DOSE
     Dates: start: 20050201, end: 20050201

REACTIONS (4)
  - CIRCULATORY COLLAPSE [None]
  - CONVULSION [None]
  - ENURESIS [None]
  - LOSS OF CONSCIOUSNESS [None]
